FAERS Safety Report 8267784-6 (Version None)
Quarter: 2012Q2

REPORT INFORMATION
  Report Type: 
  Country: None (occurrence: None)
  Receive Date: 20120409
  Receipt Date: 20120330
  Transmission Date: 20120825
  Serious: Yes (Hospitalization)
  Sender: FDA-Public Use
  Company Number: US-BAYER-2012-002787

PATIENT
  Age: 21 Year
  Sex: Female
  Weight: 68 kg

DRUGS (5)
  1. YAZ [Suspect]
     Dosage: UNK
     Dates: start: 20100401, end: 20100801
  2. PROTONIX [Concomitant]
     Dosage: 40 MG, UNK
     Route: 048
     Dates: start: 20100923
  3. HYDROCODONE BITARTRATE AND ACETAMINOPHEN [Concomitant]
     Dosage: UNK
     Route: 048
     Dates: start: 20100805
  4. AMOXICILLIN TRIHYDRATE W/CLAVULANTE POTASSIUM [Concomitant]
     Dosage: 500-125 MG
     Route: 048
     Dates: start: 20100805
  5. PREVACID [Concomitant]
     Indication: ABDOMINAL PAIN UPPER
     Dosage: 15 MG, ONE CAPSULE
     Route: 048
     Dates: start: 20100621

REACTIONS (3)
  - CHOLECYSTITIS [None]
  - PAIN [None]
  - CHOLELITHIASIS [None]
